FAERS Safety Report 13588313 (Version 4)
Quarter: 2021Q4

REPORT INFORMATION
  Report Type: Report from Study
  Country: US (occurrence: US)
  Receive Date: 20170528
  Receipt Date: 20211028
  Transmission Date: 20220303
  Serious: Yes (Hospitalization, Other)
  Sender: FDA-Public Use
  Company Number: US-BAXTER-2017BAX021741

PATIENT
  Age: 10 Year
  Sex: Male
  Weight: 29.1 kg

DRUGS (22)
  1. CYCLOPHOSPHAMIDE [Suspect]
     Active Substance: CYCLOPHOSPHAMIDE
     Indication: Acute lymphocytic leukaemia
     Dosage: FIRST DOSE, DAY 1 AND DAY 29,
     Route: 042
     Dates: start: 20170303
  2. CYCLOPHOSPHAMIDE [Suspect]
     Active Substance: CYCLOPHOSPHAMIDE
     Dosage: LAST DOSE PRIOR TO SAE
     Route: 042
     Dates: start: 20170331
  3. DOXIL [Suspect]
     Active Substance: DOXORUBICIN HYDROCHLORIDE
     Indication: Acute lymphocytic leukaemia
     Dosage: DAYS 1, 8 AND 15
     Route: 042
     Dates: start: 20170713
  4. DOXIL [Suspect]
     Active Substance: DOXORUBICIN HYDROCHLORIDE
     Dosage: LAST DOSE OF DOXORUBICIN PRIOR TO THE SAES
     Route: 065
     Dates: start: 20170728
  5. RUXOLITINIB [Suspect]
     Active Substance: RUXOLITINIB
     Indication: Acute lymphocytic leukaemia
     Dosage: FIRST DOSE ,TABLET
     Route: 048
     Dates: start: 20170303
  6. RUXOLITINIB [Suspect]
     Active Substance: RUXOLITINIB
     Dosage: LAST DOSE PRIOR TO SAE
     Route: 048
     Dates: start: 20170414
  7. RUXOLITINIB [Suspect]
     Active Substance: RUXOLITINIB
     Dosage: DOSE REDUCED
     Route: 048
     Dates: start: 20170505, end: 20170505
  8. CYTARABINE [Suspect]
     Active Substance: CYTARABINE
     Indication: Acute lymphocytic leukaemia
     Dosage: FIRST DOSE, DAYS 1-4, 8-11, 29-32- 36-39,?79 MG
     Route: 042
     Dates: start: 20170303
  9. CYTARABINE [Suspect]
     Active Substance: CYTARABINE
     Dosage: LAST DOSE PRIOR TO SAE
     Route: 042
     Dates: start: 20170410
  10. MERCAPTOPURINE [Suspect]
     Active Substance: MERCAPTOPURINE
     Indication: Acute lymphocytic leukaemia
     Dosage: FIRST DOSE?25 MILLIGRAM; ORAL
     Route: 048
     Dates: start: 20170303
  11. MERCAPTOPURINE [Suspect]
     Active Substance: MERCAPTOPURINE
     Dosage: FIRST DOSE
     Route: 048
     Dates: start: 20170403
  12. MERCAPTOPURINE [Suspect]
     Active Substance: MERCAPTOPURINE
     Dosage: LAST DOSE PRIOR TO SAE
     Route: 048
     Dates: start: 20170413
  13. VINCRISTINE [Suspect]
     Active Substance: VINCRISTINE
     Indication: Acute lymphocytic leukaemia
     Dosage: FIRST DOSE, DAY 15, 22 AND 43
     Route: 042
     Dates: start: 20170317
  14. VINCRISTINE [Suspect]
     Active Substance: VINCRISTINE
     Dosage: LAST DOSE PRIOR TO SAE
     Route: 042
     Dates: start: 20170414
  15. METHOTREXATE [Suspect]
     Active Substance: METHOTREXATE
     Indication: Acute lymphocytic leukaemia
     Dosage: FIRST DOSE, DAY 1, 8, 15 AND 22
     Route: 037
     Dates: start: 20170303
  16. METHOTREXATE [Suspect]
     Active Substance: METHOTREXATE
     Dosage: LAST DOSE PRIOR TO SAE
     Route: 037
     Dates: start: 20170324
  17. METHOTREXATE [Suspect]
     Active Substance: METHOTREXATE
     Dosage: DAYS 1, 15, 29, 43
     Route: 042
     Dates: start: 20170509
  18. PEGASPARGASE [Suspect]
     Active Substance: PEGASPARGASE
     Indication: Acute lymphocytic leukaemia
     Dosage: FIRST DOSE, DAY 15 AND 43
     Route: 042
     Dates: start: 20170317
  19. PEGASPARGASE [Suspect]
     Active Substance: PEGASPARGASE
     Dosage: LAST DOSE PRIOR TO SAE
     Route: 042
     Dates: start: 20170414
  20. DEXAMETHASONE [Suspect]
     Active Substance: DEXAMETHASONE
     Indication: Acute lymphocytic leukaemia
     Dosage: 5.25 MG, BID, DAYS 1-7 AND 15-21 DI
     Route: 048
     Dates: start: 20170713
  21. THIOGUANINE [Suspect]
     Active Substance: THIOGUANINE
     Indication: Acute lymphocytic leukaemia
     Dosage: 60 MG X 6 DAYS
     Route: 048
     Dates: start: 20170822
  22. THIOGUANINE [Suspect]
     Active Substance: THIOGUANINE
     Dosage: 80 MG 1 DAY, DAYS 29-42
     Route: 048
     Dates: start: 20170822

REACTIONS (6)
  - Upper respiratory tract infection [Recovered/Resolved]
  - Pancreatitis [Recovered/Resolved]
  - Lower respiratory tract infection fungal [Recovered/Resolved]
  - Hypertension [Recovered/Resolved]
  - Anaemia [Recovered/Resolved]
  - Febrile neutropenia [Recovered/Resolved]

NARRATIVE: CASE EVENT DATE: 20170421
